FAERS Safety Report 17351612 (Version 2)
Quarter: 2020Q1

REPORT INFORMATION
  Report Type: Report from Study
  Country: US (occurrence: US)
  Receive Date: 20200130
  Receipt Date: 20200227
  Transmission Date: 20200409
  Serious: Yes (Death)
  Sender: FDA-Public Use
  Company Number: US-ACTELION-A-NJ2019-184730

PATIENT
  Age: 81 Year
  Sex: Female
  Weight: 78.46 kg

DRUGS (7)
  1. SILDENAFIL. [Concomitant]
     Active Substance: SILDENAFIL
  2. UPTRAVI [Suspect]
     Active Substance: SELEXIPAG
     Dosage: 600 MCG, BID
     Route: 048
  3. TYLENOL [Concomitant]
     Active Substance: ACETAMINOPHEN
  4. UPTRAVI [Suspect]
     Active Substance: SELEXIPAG
     Dosage: UNK
     Route: 048
     Dates: start: 20181222
  5. UPTRAVI [Suspect]
     Active Substance: SELEXIPAG
     Dosage: 400 MCG, BID
     Route: 048
  6. OPSUMIT [Suspect]
     Active Substance: MACITENTAN
     Indication: PULMONARY HYPERTENSION
     Dosage: 10 MG, QD
     Route: 048
     Dates: start: 20150213, end: 20200115
  7. UPTRAVI [Suspect]
     Active Substance: SELEXIPAG
     Indication: PULMONARY HYPERTENSION
     Dosage: 800 MCG, BID
     Route: 048

REACTIONS (14)
  - Facial pain [Recovering/Resolving]
  - Headache [Unknown]
  - Hospice care [Recovered/Resolved]
  - Pain [Unknown]
  - Diarrhoea [Unknown]
  - Dyspnoea [Recovered/Resolved]
  - Vision blurred [Recovered/Resolved]
  - Nausea [Unknown]
  - Arthritis [Unknown]
  - Neoplasm malignant [Fatal]
  - Fall [Recovered/Resolved with Sequelae]
  - Raynaud^s phenomenon [Unknown]
  - Arthralgia [Recovered/Resolved with Sequelae]
  - Flushing [Unknown]

NARRATIVE: CASE EVENT DATE: 20181128
